FAERS Safety Report 13252402 (Version 3)
Quarter: 2017Q3

REPORT INFORMATION
  Report Type: Report from Study
  Country: US (occurrence: US)
  Receive Date: 20170220
  Receipt Date: 20170906
  Transmission Date: 20171127
  Serious: Yes (Hospitalization, Other)
  Sender: FDA-Public Use
  Company Number: US-CORCEPT THERAPEUTICS INC.-US-2017CRT000107

PATIENT

DRUGS (10)
  1. ALDACTONE [Concomitant]
     Active Substance: SPIRONOLACTONE
     Dosage: 50 MG, TID
     Dates: start: 2017
  2. KORLYM [Suspect]
     Active Substance: MIFEPRISTONE
     Indication: BENIGN NEOPLASM
     Dosage: 600 MG, QD
     Route: 048
     Dates: start: 201411, end: 201412
  3. KORLYM [Suspect]
     Active Substance: MIFEPRISTONE
     Dosage: 600 MG, QD
     Route: 048
     Dates: start: 2017
  4. POTASSIUM [Concomitant]
     Active Substance: POTASSIUM
     Dosage: 4 PILLS, BID
     Dates: start: 201702
  5. ALDACTONE [Concomitant]
     Active Substance: SPIRONOLACTONE
     Indication: PRODUCT USED FOR UNKNOWN INDICATION
     Dosage: UNK
  6. KORLYM [Suspect]
     Active Substance: MIFEPRISTONE
     Indication: HYPOTHYROIDISM
     Dosage: 300 MG, QD
     Route: 048
     Dates: start: 201412, end: 201501
  7. KORLYM [Suspect]
     Active Substance: MIFEPRISTONE
     Indication: ESSENTIAL HYPERTENSION
     Dosage: 1200 MG, QD
     Route: 048
     Dates: start: 20150119, end: 201503
  8. POTASSIUM [Concomitant]
     Active Substance: POTASSIUM
     Indication: PRODUCT USED FOR UNKNOWN INDICATION
     Dosage: UNK
  9. KORLYM [Suspect]
     Active Substance: MIFEPRISTONE
     Indication: CUSHING^S SYNDROME
     Dosage: 300 MG, QD
     Route: 048
     Dates: start: 201410, end: 201411
  10. KORLYM [Suspect]
     Active Substance: MIFEPRISTONE
     Dosage: 600 MG, QD
     Route: 048
     Dates: start: 201504, end: 201702

REACTIONS (10)
  - Hypokalaemia [Recovered/Resolved]
  - Haematuria [Unknown]
  - Weight decreased [Unknown]
  - Vaginal haemorrhage [Unknown]
  - Nausea [Unknown]
  - Endometrial thickening [Not Recovered/Not Resolved]
  - Vomiting [Recovered/Resolved]
  - Pneumonia [Recovering/Resolving]
  - Uterine dilation and curettage [Unknown]
  - Fatigue [Unknown]

NARRATIVE: CASE EVENT DATE: 2017
